FAERS Safety Report 11346811 (Version 1)
Quarter: 2015Q3

REPORT INFORMATION
  Report Type: Spontaneous
  Country: US (occurrence: US)
  Receive Date: 20150803
  Receipt Date: 20150803
  Transmission Date: 20151125
  Serious: No
  Sender: FDA-Public Use
  Company Number: US-ELI_LILLY_AND_COMPANY-US201101001253

PATIENT
  Age: 19 Year
  Sex: Female

DRUGS (4)
  1. CELEXA [Concomitant]
     Active Substance: CITALOPRAM HYDROBROMIDE
     Dosage: 60 MG, DAILY (1/D)
  2. ZYPREXA [Suspect]
     Active Substance: OLANZAPINE
     Dosage: 12.5 MG, DAILY (1/D)
  3. CLONOPIN [Concomitant]
     Active Substance: CLONAZEPAM
     Dosage: 0.05 MG, EACH EVENING
  4. ZYPREXA [Suspect]
     Active Substance: OLANZAPINE
     Indication: MAJOR DEPRESSION
     Dosage: 2.5 MG, DAILY (1/D)
     Dates: start: 20101116

REACTIONS (3)
  - Drug ineffective [Not Recovered/Not Resolved]
  - Weight increased [Unknown]
  - Paraesthesia oral [Not Recovered/Not Resolved]
